FAERS Safety Report 17888246 (Version 1)
Quarter: 2020Q2

REPORT INFORMATION
  Report Type: Spontaneous
  Country: US (occurrence: US)
  Receive Date: 20200612
  Receipt Date: 20200612
  Transmission Date: 20200714
  Serious: Yes (Hospitalization)
  Sender: FDA-Public Use
  Company Number: US-ADAREPHARM-2020-US-000061

PATIENT
  Sex: 0

DRUGS (28)
  1. VIMPAT [Suspect]
     Active Substance: LACOSAMIDE
     Route: 048
  2. FUROSEMIDE. [Suspect]
     Active Substance: FUROSEMIDE
     Route: 048
  3. MAALOX MAX [Suspect]
     Active Substance: ALUMINUM HYDROXIDE\DIMETHICONE\MAGNESIUM HYDROXIDE
     Route: 065
  4. VALACYCLOVIR [Suspect]
     Active Substance: VALACYCLOVIR HYDROCHLORIDE
     Route: 048
  5. ONDANSETRON [Suspect]
     Active Substance: ONDANSETRON
     Route: 048
  6. MELATONIN [Suspect]
     Active Substance: MELATONIN
     Route: 048
  7. ADVAIR DISKUS [Suspect]
     Active Substance: FLUTICASONE PROPIONATE\SALMETEROL XINAFOATE
     Route: 048
  8. FINASTERIDE. [Suspect]
     Active Substance: FINASTERIDE
     Route: 048
  9. TOPIRAMATE. [Suspect]
     Active Substance: TOPIRAMATE
     Route: 048
  10. TUMS [Suspect]
     Active Substance: CALCIUM CARBONATE
     Route: 048
  11. LATANOPROST. [Suspect]
     Active Substance: LATANOPROST
     Route: 047
  12. HEPARIN LOCK FLUSH [Suspect]
     Active Substance: HEPARIN SODIUM
     Route: 065
  13. SPIRIVA [Suspect]
     Active Substance: TIOTROPIUM BROMIDE MONOHYDRATE
     Route: 055
  14. TESTOSTERONE. [Suspect]
     Active Substance: TESTOSTERONE
     Route: 062
  15. KCL [Suspect]
     Active Substance: POTASSIUM CHLORIDE
     Route: 048
  16. VITAMIN D2 [Suspect]
     Active Substance: ERGOCALCIFEROL
     Route: 048
  17. CYANOCOBALAMIN. [Suspect]
     Active Substance: CYANOCOBALAMIN
     Dosage: IJ
     Route: 065
  18. BOSULIF [Suspect]
     Active Substance: BOSUTINIB MONOHYDRATE
     Dosage: TAKE ONE TABLET BY MOUTH ONCE DAILY WITH FOOD (SWALLOW WHOLE, AND DO NOT CRUSH AND CUT)
     Route: 048
     Dates: start: 20190918, end: 20200515
  19. EMLA [Suspect]
     Active Substance: LIDOCAINE\PRILOCAINE
     Route: 065
  20. CYMBALTA [Suspect]
     Active Substance: DULOXETINE HYDROCHLORIDE
     Route: 048
  21. DIAZEPAM. [Suspect]
     Active Substance: DIAZEPAM
     Route: 048
  22. COLACE [Suspect]
     Active Substance: DOCUSATE SODIUM
     Route: 048
  23. RESTASIS [Suspect]
     Active Substance: CYCLOSPORINE
     Route: 047
  24. OXYCODONE [Suspect]
     Active Substance: OXYCODONE
     Route: 048
  25. METHADONE [Suspect]
     Active Substance: METHADONE HYDROCHLORIDE
     Route: 048
  26. CYCLOBENZAPRINE. [Suspect]
     Active Substance: CYCLOBENZAPRINE
     Route: 048
  27. MIRALAX [Suspect]
     Active Substance: POLYETHYLENE GLYCOL 3350
     Route: 048
  28. PANTOPRAZOLE SODIUM. [Suspect]
     Active Substance: PANTOPRAZOLE SODIUM
     Route: 048

REACTIONS (2)
  - COVID-19 [Unknown]
  - Acute lymphocytic leukaemia [Unknown]

NARRATIVE: CASE EVENT DATE: 20200515
